FAERS Safety Report 12418577 (Version 2)
Quarter: 2016Q3

REPORT INFORMATION
  Report Type: Spontaneous
  Country: HU (occurrence: HU)
  Receive Date: 20160531
  Receipt Date: 20160721
  Transmission Date: 20161109
  Serious: Yes (Other)
  Sender: FDA-Public Use
  Company Number: HU-ROCHE-1766041

PATIENT
  Sex: Male

DRUGS (1)
  1. XOLAIR [Suspect]
     Active Substance: OMALIZUMAB
     Indication: PRODUCT USED FOR UNKNOWN INDICATION
     Route: 065

REACTIONS (7)
  - Dyspnoea [Recovered/Resolved]
  - Periorbital oedema [Recovered/Resolved]
  - Angioedema [Recovered/Resolved]
  - Face oedema [Recovered/Resolved]
  - Headache [Recovered/Resolved]
  - Hypersensitivity [Recovered/Resolved]
  - Anaphylactoid reaction [Recovered/Resolved]
